FAERS Safety Report 8702736 (Version 2)
Quarter: 2012Q4

REPORT INFORMATION
  Report Type: 
  Country: US (occurrence: US)
  Receive Date: 20120803
  Receipt Date: 20121005
  Transmission Date: 20130627
  Serious: Yes (Other)
  Sender: FDA-Public Use
  Company Number: US-ROCHE-1096802

PATIENT
  Sex: Female

DRUGS (22)
  1. XOLAIR [Suspect]
     Indication: ASTHMA
     Dosage: L and R arm
     Route: 058
     Dates: start: 20070612
  2. XOLAIR [Suspect]
     Indication: RHINITIS SEASONAL
     Dosage: L and R arm
     Route: 065
     Dates: start: 20070717
  3. XOLAIR [Suspect]
     Dosage: L and R arm
     Route: 058
     Dates: start: 20070814
  4. XOLAIR [Suspect]
     Dosage: L and R arm
     Route: 058
     Dates: start: 20070917
  5. XOLAIR [Suspect]
     Dosage: L and R arm
     Route: 058
     Dates: start: 20071015
  6. XOLAIR [Suspect]
     Dosage: L and R arm
     Route: 058
     Dates: start: 20071203
  7. XOLAIR [Suspect]
     Dosage: L and R arm
     Route: 058
     Dates: start: 20080107
  8. XOLAIR [Suspect]
     Dosage: L and R arm
     Route: 058
     Dates: start: 20080211
  9. XOLAIR [Suspect]
     Dosage: L and R arm
     Route: 058
     Dates: start: 20080311
  10. XOLAIR [Suspect]
     Dosage: L and R arm
     Route: 058
     Dates: start: 20080415
  11. XOLAIR [Suspect]
     Dosage: L and R arm
     Route: 058
     Dates: start: 20080512
  12. XOLAIR [Suspect]
     Dosage: L and R arm
     Route: 058
     Dates: start: 20080617
  13. XOLAIR [Suspect]
     Dosage: L and R arm
     Route: 058
     Dates: start: 20080714
  14. XOLAIR [Suspect]
     Dosage: L and R arm
     Route: 058
     Dates: start: 20081024
  15. XOLAIR [Suspect]
     Dosage: L and R arm
     Route: 058
     Dates: start: 20081125
  16. XOLAIR [Suspect]
     Dosage: L and R arm
     Route: 058
     Dates: start: 20081223
  17. XOLAIR [Suspect]
     Dosage: L and R arm
     Route: 058
     Dates: start: 20090120
  18. XOLAIR [Suspect]
     Dosage: L and R arm
     Route: 058
     Dates: start: 20090220
  19. XOLAIR [Suspect]
     Dosage: L and R arm
     Route: 058
     Dates: start: 20090320
  20. XOLAIR [Suspect]
     Dosage: L and R arm
     Route: 058
     Dates: start: 20090424
  21. XOLAIR [Suspect]
     Dosage: L and R arm
     Route: 058
     Dates: start: 20090515
  22. XOLAIR [Suspect]
     Dosage: L and R arm
     Route: 058
     Dates: start: 20090623

REACTIONS (6)
  - Asthma [Unknown]
  - Rash [Unknown]
  - Headache [Unknown]
  - Cough [Unknown]
  - Dizziness [Unknown]
  - Throat tightness [Unknown]
